FAERS Safety Report 4426823-0 (Version None)
Quarter: 2004Q3

REPORT INFORMATION
  Report Type: 
  Country: None (occurrence: None)
  Receive Date: 20040816
  Receipt Date: 20040726
  Transmission Date: 20050211
  Serious: Yes (Hospitalization)
  Sender: FDA-Public Use
  Company Number: JP-GLAXOSMITHKLINE-B0341021A

PATIENT
  Sex: Female
  Weight: 2.4 kg

DRUGS (5)
  1. PAXIL [Suspect]
     Dates: start: 20040518, end: 20040712
  2. MEILAX [Suspect]
     Dosage: 2MG PER DAY
     Dates: start: 20040508, end: 20040712
  3. LENDORM [Suspect]
     Dosage: .25MG PER DAY
     Dates: start: 20040508, end: 20040713
  4. MELLARIL [Suspect]
     Dosage: 10MG PER DAY
     Dates: start: 20040713, end: 20040714
  5. BENZALIN [Suspect]
     Dosage: 10MG PER DAY
     Dates: start: 20040713, end: 20040714

REACTIONS (3)
  - DRUG EXPOSURE DURING PREGNANCY [None]
  - FEEDING PROBLEM IN NEWBORN [None]
  - HYPOTHERMIA [None]
